FAERS Safety Report 5082603-7 (Version None)
Quarter: 2006Q3

REPORT INFORMATION
  Report Type: 
  Country: None (occurrence: None)
  Receive Date: 20060817
  Receipt Date: 20060810
  Transmission Date: 20061208
  Serious: Yes (Hospitalization, Disabling)
  Sender: FDA-Public Use
  Company Number: US-SANOFI-SYNTHELABO-A03200605063

PATIENT
  Age: 60 Year
  Sex: Male

DRUGS (6)
  1. OXYCONTIN [Concomitant]
     Route: 048
  2. NEURONTIN [Concomitant]
     Dosage: 400MG AM, 400MG PM, AND 600 MG AT BEDTIME
     Route: 048
  3. AMBIEN [Suspect]
     Indication: INSOMNIA
     Dosage: 10 MG TWO TO THREE TIMES A WEEK
     Route: 048
  4. LUNESTA [Suspect]
     Indication: INSOMNIA
     Dosage: UNK
     Route: 048
     Dates: start: 20050601, end: 20050801
  5. ANTIBIOTICS NOS [Concomitant]
     Dosage: UNK
     Route: 065
  6. MORPHINE [Concomitant]
     Dosage: UNK
     Route: 065

REACTIONS (7)
  - DREAMY STATE [None]
  - DYSSTASIA [None]
  - GAIT DISTURBANCE [None]
  - HALLUCINATIONS, MIXED [None]
  - INTERVERTEBRAL DISCITIS [None]
  - NEUROPATHY PERIPHERAL [None]
  - STAPHYLOCOCCAL INFECTION [None]
